FAERS Safety Report 10026676 (Version 2)
Quarter: 2014Q2

REPORT INFORMATION
  Report Type: Report from Study
  Country: GB (occurrence: GB)
  Receive Date: 20140321
  Receipt Date: 20140415
  Transmission Date: 20141212
  Serious: Yes (Hospitalization)
  Sender: FDA-Public Use
  Company Number: GB-ROCHE-1364746

PATIENT
  Age: 49 Year
  Sex: Female
  Weight: 84 kg

DRUGS (7)
  1. TRASTUZUMAB [Suspect]
     Indication: BREAST CANCER
     Dosage: LOADING DOSE AS PER PROTOCOL
     Route: 042
  2. TRASTUZUMAB [Suspect]
     Dosage: LAST DOSE PRIOR TO SAE 10/FEB/2014
     Route: 042
     Dates: start: 20100615
  3. TRAMADOL [Concomitant]
     Route: 065
     Dates: start: 20130929
  4. CALCIUM CARBONATE/ERGOCALCIFEROL [Concomitant]
  5. DENOSUMAB [Concomitant]
     Route: 065
     Dates: start: 20130927
  6. PAMIDRONATE [Concomitant]
     Route: 065
     Dates: start: 20101123, end: 20130720
  7. PERTUZUMAB [Suspect]
     Indication: BREAST CANCER
     Dosage: LAST DOSE PRIOR TO SAE 10/FEB/2014
     Route: 042
     Dates: start: 20100614

REACTIONS (1)
  - Groin abscess [Recovered/Resolved]
